FAERS Safety Report 23025931 (Version 1)
Quarter: 2023Q4

REPORT INFORMATION
  Report Type: Spontaneous
  Country: JP (occurrence: JP)
  Receive Date: 20231004
  Receipt Date: 20231004
  Transmission Date: 20240109
  Serious: Yes (Hospitalization)
  Sender: FDA-Public Use
  Company Number: JP-JNJFOC-20230900721

PATIENT
  Age: 64 Year
  Sex: Male

DRUGS (2)
  1. IMBRUVICA [Suspect]
     Active Substance: IBRUTINIB
     Indication: Chronic graft versus host disease
     Dosage: IBRUTINIB:140MG
     Route: 048
  2. FLUCONAZOLE [Concomitant]
     Active Substance: FLUCONAZOLE
     Indication: Product used for unknown indication
     Dosage: DOSE UNKNOWN
     Route: 065

REACTIONS (2)
  - COVID-19 [Recovering/Resolving]
  - Organising pneumonia [Recovering/Resolving]
